FAERS Safety Report 11434102 (Version 1)
Quarter: 2015Q3

REPORT INFORMATION
  Report Type: Spontaneous
  Country: US (occurrence: US)
  Receive Date: 20150831
  Receipt Date: 20150831
  Transmission Date: 20151125
  Serious: No
  Sender: FDA-Public Use
  Company Number: US-BIOGENIDEC-2015BI118716

PATIENT
  Sex: Female

DRUGS (2)
  1. AVONEX [Suspect]
     Active Substance: INTERFERON BETA-1A
     Indication: MULTIPLE SCLEROSIS
     Route: 030
     Dates: start: 20030822
  2. AVONEX [Suspect]
     Active Substance: INTERFERON BETA-1A
     Indication: MULTIPLE SCLEROSIS
     Route: 030
     Dates: start: 19970801, end: 200308

REACTIONS (4)
  - Gait disturbance [Unknown]
  - Arthritis [Not Recovered/Not Resolved]
  - Balance disorder [Not Recovered/Not Resolved]
  - Multiple sclerosis [Unknown]

NARRATIVE: CASE EVENT DATE: 2010
